FAERS Safety Report 10170156 (Version 3)
Quarter: 2017Q1

REPORT INFORMATION
  Report Type: Spontaneous
  Country: FR (occurrence: FR)
  Receive Date: 20140513
  Receipt Date: 20170119
  Transmission Date: 20170428
  Serious: Yes (Other)
  Sender: FDA-Public Use
  Company Number: FR-TEVA-479552ISR

PATIENT
  Age: 4 Year
  Sex: Male
  Weight: 16.6 kg

DRUGS (8)
  1. LEDERTREXATE [Suspect]
     Active Substance: METHOTREXATE
     Dosage: MAINTENANCE TREATMENT FRALL 2000A PROTOCOL
     Route: 037
     Dates: start: 20130613
  2. LEDERTREXATE [Suspect]
     Active Substance: METHOTREXATE
     Dosage: MAINTENANCE TREATMENT FRALL 2000A PROTOCOL
     Route: 037
     Dates: start: 20130321
  3. LEDERTREXATE [Suspect]
     Active Substance: METHOTREXATE
     Indication: ACUTE LYMPHOCYTIC LEUKAEMIA
     Dosage: MAINTENANCE TREATMENT FRALL 2000A PROTOCOL
     Route: 037
     Dates: start: 20131205
  4. VINCRISTINE TEVA [Suspect]
     Active Substance: VINCRISTINE
     Indication: ACUTE LYMPHOCYTIC LEUKAEMIA
     Dosage: MAINTENANCE TREATMENT FRALL 2000 A PROTOCOL
     Route: 041
     Dates: start: 20120603
  5. LEDERTREXATE [Suspect]
     Active Substance: METHOTREXATE
     Dosage: MAINTENANCE TREATMENT FRALL 2000A PROTOCOL
     Route: 037
     Dates: start: 20130912
  6. LEDERTREXATE [Suspect]
     Active Substance: METHOTREXATE
     Dosage: FRALL 2000A PROTOCOL
     Dates: start: 201206
  7. DEXAMETHASONE. [Suspect]
     Active Substance: DEXAMETHASONE
     Indication: ACUTE LYMPHOCYTIC LEUKAEMIA
     Dosage: MAINTENANCE TREATMENT FRALL 2000A PROTOCOL
     Route: 048
  8. MERCAPTOPURINE. [Suspect]
     Active Substance: MERCAPTOPURINE
     Indication: ACUTE LYMPHOCYTIC LEUKAEMIA
     Dosage: MAINTENANCE TREATMENT FRALL 2000A PROTOCOL
     Route: 048

REACTIONS (5)
  - Rhinitis [Unknown]
  - Cough [Unknown]
  - Tremor [Unknown]
  - Encephalopathy [Recovered/Resolved with Sequelae]
  - Gait disturbance [Unknown]

NARRATIVE: CASE EVENT DATE: 201312
